FAERS Safety Report 23256739 (Version 3)
Quarter: 2024Q2

REPORT INFORMATION
  Report Type: Spontaneous
  Country: US (occurrence: US)
  Receive Date: 20231204
  Receipt Date: 20240621
  Transmission Date: 20240716
  Serious: Yes (Hospitalization, Other)
  Sender: FDA-Public Use
  Company Number: US-SA-SAC20231201000742

PATIENT
  Age: 70 Year
  Sex: Female

DRUGS (1)
  1. DUPIXENT [Suspect]
     Active Substance: DUPILUMAB
     Indication: Dermatitis atopic
     Dosage: 300 MG, QOW
     Route: 058
     Dates: start: 20230927

REACTIONS (11)
  - Colitis [Recovering/Resolving]
  - Dyspepsia [Recovering/Resolving]
  - Hypokinesia [Recovering/Resolving]
  - Gastric dilatation [Recovering/Resolving]
  - Skin fissures [Recovering/Resolving]
  - Rash [Recovering/Resolving]
  - Pain [Unknown]
  - Musculoskeletal stiffness [Unknown]
  - Dry skin [Unknown]
  - Nail disorder [Unknown]
  - Feeling abnormal [Unknown]

NARRATIVE: CASE EVENT DATE: 20230101
